FAERS Safety Report 20126751 (Version 1)
Quarter: 2021Q4

REPORT INFORMATION
  Report Type: Spontaneous
  Country: US (occurrence: None)
  Receive Date: 20211128
  Receipt Date: 20211128
  Transmission Date: 20220303
  Serious: Yes (Hospitalization, Disabling)
  Sender: FDA-Public Use
  Company Number: None

PATIENT
  Age: 36 Year
  Sex: Female
  Weight: 85.5 kg

DRUGS (1)
  1. LORAZEPAM [Suspect]
     Active Substance: LORAZEPAM
     Indication: Postpartum anxiety
     Dosage: FREQUENCY : 3 TIMES A DAY;?
     Route: 048
     Dates: start: 20210105, end: 20211115

REACTIONS (11)
  - Hallucination [None]
  - Vision blurred [None]
  - Derealisation [None]
  - Depersonalisation/derealisation disorder [None]
  - Fatigue [None]
  - Muscle atrophy [None]
  - Depression [None]
  - Muscle twitching [None]
  - Bedridden [None]
  - Impaired quality of life [None]
  - Hypertension [None]

NARRATIVE: CASE EVENT DATE: 20210105
